FAERS Safety Report 25806916 (Version 1)
Quarter: 2025Q3

REPORT INFORMATION
  Report Type: Spontaneous
  Country: US (occurrence: US)
  Receive Date: 20250916
  Receipt Date: 20250916
  Transmission Date: 20251020
  Serious: No
  Sender: BRAEBURN PHARMACEUTICALS
  Company Number: US-BRAEBURN PHARMACEUTICALS-US-BRA-25-000567

PATIENT
  Age: 64 Year
  Sex: Male

DRUGS (2)
  1. BRIXADI [Suspect]
     Active Substance: BUPRENORPHINE
     Indication: Drug use disorder
     Dosage: 16 MILLIGRAM, QW
     Route: 058
     Dates: start: 20250509, end: 20250509
  2. BRIXADI [Suspect]
     Active Substance: BUPRENORPHINE
     Dosage: 24 MILLIGRAM, QW (LEFT LOWER ABDOMEN)
     Route: 058
     Dates: start: 20250516, end: 20250516

REACTIONS (4)
  - Injection site mass [Recovering/Resolving]
  - Injection site pruritus [Unknown]
  - Drug dependence [Unknown]
  - Underdose [Unknown]

NARRATIVE: CASE EVENT DATE: 20250501
